FAERS Safety Report 17492744 (Version 2)
Quarter: 2021Q2

REPORT INFORMATION
  Report Type: Spontaneous
  Country: US (occurrence: US)
  Receive Date: 20200304
  Receipt Date: 20210420
  Transmission Date: 20210716
  Serious: Yes (Death, Hospitalization, Other)
  Sender: FDA-Public Use
  Company Number: US-ASTRAZENECA-2020SE28970

PATIENT
  Age: 23418 Day
  Sex: Female
  Weight: 86.2 kg

DRUGS (74)
  1. HYDROCHLOROTHIAZIDE. [Concomitant]
     Active Substance: HYDROCHLOROTHIAZIDE
     Indication: DIURETIC THERAPY
     Dates: start: 200506, end: 201002
  2. PROPRANOLOL [Concomitant]
     Active Substance: PROPRANOLOL HYDROCHLORIDE
     Indication: HYPERTENSION
     Dates: start: 200610, end: 200907
  3. DOXYCYCLINE. [Concomitant]
     Active Substance: DOXYCYCLINE
     Indication: ANTIBIOTIC THERAPY
     Dates: start: 201204, end: 201801
  4. TRAZODONE [Concomitant]
     Active Substance: TRAZODONE HYDROCHLORIDE
     Indication: DEPRESSION
     Dates: start: 201305, end: 201801
  5. LEVAQUIN [Concomitant]
     Active Substance: LEVOFLOXACIN
  6. VENTOLIN [Concomitant]
     Active Substance: ALBUTEROL SULFATE
  7. SUMATRIPTAN. [Concomitant]
     Active Substance: SUMATRIPTAN
  8. BUTAL/ACETAMIN [Concomitant]
  9. TEMAZEPAM. [Concomitant]
     Active Substance: TEMAZEPAM
  10. ZITHROMAX [Concomitant]
     Active Substance: AZITHROMYCIN DIHYDRATE
  11. MULTIVITAMINS [Concomitant]
     Active Substance: VITAMINS
  12. TRAZODONE [Concomitant]
     Active Substance: TRAZODONE HYDROCHLORIDE
  13. ERYTHROMYCIN. [Concomitant]
     Active Substance: ERYTHROMYCIN
  14. ESCITALOPRAM [Concomitant]
     Active Substance: ESCITALOPRAM OXALATE
  15. ALBUTEROL. [Concomitant]
     Active Substance: ALBUTEROL
  16. ATORVASTATIN [Concomitant]
     Active Substance: ATORVASTATIN
  17. ATROPINE SULFATE. [Concomitant]
     Active Substance: ATROPINE SULFATE
  18. NEXIUM [Suspect]
     Active Substance: ESOMEPRAZOLE MAGNESIUM
     Indication: GASTROOESOPHAGEAL REFLUX DISEASE
     Route: 048
     Dates: start: 2001, end: 2018
  19. PROTONIX [Suspect]
     Active Substance: PANTOPRAZOLE SODIUM
     Indication: GASTROOESOPHAGEAL REFLUX DISEASE
     Route: 065
     Dates: start: 2014
  20. MELOXICAM. [Concomitant]
     Active Substance: MELOXICAM
  21. CARB/LEVO [Concomitant]
     Active Substance: CARBIDOPA\LEVODOPA
  22. GABAPENTIN. [Concomitant]
     Active Substance: GABAPENTIN
  23. METOPROLOL TARTRATE. [Concomitant]
     Active Substance: METOPROLOL TARTRATE
  24. HYCOMINE [Concomitant]
     Active Substance: HYDROCODONE BITARTRATE\PHENYLPROPANOLAMINE HYDROCHLORIDE
  25. LAMISIL [Concomitant]
     Active Substance: TERBINAFINE HYDROCHLORIDE
  26. CEFDINIR. [Concomitant]
     Active Substance: CEFDINIR
  27. MORPHINE SULFATE. [Concomitant]
     Active Substance: MORPHINE SULFATE
  28. ESCITALOPRAM [Concomitant]
     Active Substance: ESCITALOPRAM OXALATE
  29. PREVACID [Suspect]
     Active Substance: LANSOPRAZOLE
     Indication: GASTROOESOPHAGEAL REFLUX DISEASE
     Route: 065
     Dates: start: 2001, end: 2018
  30. CARVEDILOL. [Concomitant]
     Active Substance: CARVEDILOL
     Indication: BLOOD PRESSURE MEASUREMENT
     Dates: start: 201305, end: 201801
  31. PEPCID [Concomitant]
     Active Substance: FAMOTIDINE
     Dates: start: 2000
  32. PREDNISONE. [Concomitant]
     Active Substance: PREDNISONE
  33. AMOXICILLIN. [Concomitant]
     Active Substance: AMOXICILLIN
  34. ONDANSETRON [Concomitant]
     Active Substance: ONDANSETRON
  35. NEXIUM [Suspect]
     Active Substance: ESOMEPRAZOLE MAGNESIUM
     Indication: GASTROOESOPHAGEAL REFLUX DISEASE
     Route: 048
     Dates: start: 20051121
  36. PROAIR HFA [Concomitant]
     Active Substance: ALBUTEROL SULFATE
     Indication: CHRONIC OBSTRUCTIVE PULMONARY DISEASE
     Dates: start: 201003, end: 201801
  37. MELOXICAM. [Concomitant]
     Active Substance: MELOXICAM
  38. SYMBICORT [Concomitant]
     Active Substance: BUDESONIDE\FORMOTEROL FUMARATE DIHYDRATE
  39. MIRTAZAPINE. [Concomitant]
     Active Substance: MIRTAZAPINE
  40. CYCLOBENZAPRIN [Concomitant]
     Active Substance: CYCLOBENZAPRINE
  41. ZANAFLEX [Concomitant]
     Active Substance: TIZANIDINE HYDROCHLORIDE
  42. METOCLOPRAMIDE. [Concomitant]
     Active Substance: METOCLOPRAMIDE
  43. MIDAZOLAM. [Concomitant]
     Active Substance: MIDAZOLAM
  44. NALOXONE [Concomitant]
     Active Substance: NALOXONE
  45. NEXIUM [Suspect]
     Active Substance: ESOMEPRAZOLE MAGNESIUM
     Indication: GASTROOESOPHAGEAL REFLUX DISEASE
     Route: 048
     Dates: start: 200103, end: 201801
  46. NEXIUM [Suspect]
     Active Substance: ESOMEPRAZOLE MAGNESIUM
     Indication: GASTROOESOPHAGEAL REFLUX DISEASE
     Dosage: GENERIC
     Route: 065
     Dates: end: 2018
  47. PREVACID [Suspect]
     Active Substance: LANSOPRAZOLE
     Indication: GASTROOESOPHAGEAL REFLUX DISEASE
     Route: 065
     Dates: start: 200103, end: 201801
  48. LORAZEPAM. [Concomitant]
     Active Substance: LORAZEPAM
     Indication: ANXIETY
     Dates: start: 200611
  49. PRAVASTATIN. [Concomitant]
     Active Substance: PRAVASTATIN
     Indication: BLOOD CHOLESTEROL
     Dates: start: 201305, end: 201801
  50. CYCLOBENZAPRINE. [Concomitant]
     Active Substance: CYCLOBENZAPRINE
  51. CARVEDILOL. [Concomitant]
     Active Substance: CARVEDILOL
  52. SERTRALINE [Concomitant]
     Active Substance: SERTRALINE HYDROCHLORIDE
  53. LIDOCAINE. [Concomitant]
     Active Substance: LIDOCAINE
  54. ALPRAZOLAM. [Concomitant]
     Active Substance: ALPRAZOLAM
  55. SIMVASTATIN. [Concomitant]
     Active Substance: SIMVASTATIN
  56. ZANTAC [Concomitant]
     Active Substance: RANITIDINE HYDROCHLORIDE
     Dates: start: 2000
  57. TRAZODONE [Concomitant]
     Active Substance: TRAZODONE HYDROCHLORIDE
  58. LISINOPRIL. [Concomitant]
     Active Substance: LISINOPRIL
  59. PROMETHEGAN [Concomitant]
     Active Substance: PROMETHAZINE HYDROCHLORIDE
  60. HYDROCO/APAP [Concomitant]
     Active Substance: ACETAMINOPHEN\HYDROCODONE
  61. ULTRAM [Concomitant]
     Active Substance: TRAMADOL HYDROCHLORIDE
  62. CLONIDINE. [Concomitant]
     Active Substance: CLONIDINE
  63. CITALOPRAM [Concomitant]
     Active Substance: CITALOPRAM HYDROBROMIDE
  64. ASPIRIN. [Concomitant]
     Active Substance: ASPIRIN
  65. HYDROMORPHONE [Concomitant]
     Active Substance: HYDROMORPHONE
  66. MEPERIDINE [Concomitant]
     Active Substance: MEPERIDINE
  67. METOCLOPRAMIDE. [Concomitant]
     Active Substance: METOCLOPRAMIDE
  68. CITALOPRAM [Concomitant]
     Active Substance: CITALOPRAM HYDROBROMIDE
     Indication: DEPRESSION
     Dates: start: 200706, end: 201801
  69. TUMS [Concomitant]
     Active Substance: CALCIUM CARBONATE
     Dates: start: 200301, end: 200501
  70. CITALOPRAM [Concomitant]
     Active Substance: CITALOPRAM HYDROBROMIDE
  71. PRAVASTATIN. [Concomitant]
     Active Substance: PRAVASTATIN
  72. IBUPROFEN. [Concomitant]
     Active Substance: IBUPROFEN
  73. GABAPENTIN. [Concomitant]
     Active Substance: GABAPENTIN
  74. MOTRIN [Concomitant]
     Active Substance: IBUPROFEN

REACTIONS (4)
  - Acute kidney injury [Unknown]
  - Renal failure [Unknown]
  - Chronic kidney disease [Unknown]
  - Renal tubular necrosis [Unknown]

NARRATIVE: CASE EVENT DATE: 20170401
